FAERS Safety Report 22119455 (Version 1)
Quarter: 2023Q1

REPORT INFORMATION
  Report Type: Spontaneous
  Country: US (occurrence: None)
  Receive Date: 20230320
  Receipt Date: 20230320
  Transmission Date: 20230418
  Serious: Yes (Life-Threatening, Hospitalization, Disabling)
  Sender: FDA-Public Use
  Company Number: None

PATIENT
  Age: 34 Year
  Sex: Male
  Weight: 108 kg

DRUGS (3)
  1. LIALDA [Suspect]
     Active Substance: MESALAMINE
  2. PREDNISONE [Concomitant]
     Active Substance: PREDNISONE
  3. VALSARTAN [Concomitant]

REACTIONS (13)
  - Diarrhoea [None]
  - Pulmonary congestion [None]
  - Pleural effusion [None]
  - Pericardial effusion [None]
  - Ejection fraction decreased [None]
  - Heart valve incompetence [None]
  - Cardiomyopathy [None]
  - Oxygen saturation decreased [None]
  - Arthralgia [None]
  - Arthralgia [None]
  - Insomnia [None]
  - Gait disturbance [None]
  - Sinus tachycardia [None]

NARRATIVE: CASE EVENT DATE: 20230210
